FAERS Safety Report 23769817 (Version 2)
Quarter: 2024Q2

REPORT INFORMATION
  Report Type: Spontaneous
  Country: JP (occurrence: JP)
  Receive Date: 20240422
  Receipt Date: 20240613
  Transmission Date: 20240716
  Serious: Yes (Hospitalization, Other)
  Sender: FDA-Public Use
  Company Number: JP-PFIZER INC-PV202400050209

PATIENT
  Age: 78 Year
  Sex: Female
  Weight: 42 kg

DRUGS (5)
  1. FLUCAM [Suspect]
     Active Substance: AMPIROXICAM
     Indication: Cervicobrachial syndrome
     Dosage: 27 MG, 1X/DAY
     Route: 048
     Dates: start: 20240111, end: 20240309
  2. LOSARTAN POTASSIUM [Concomitant]
     Active Substance: LOSARTAN POTASSIUM
     Dosage: 50 MG, 1X/DAY (2 TABLETS AFTER BREAKFAST)
     Dates: start: 20240111
  3. BETAHISTINE MESILATE [Concomitant]
     Active Substance: BETAHISTINE MESILATE
     Dosage: 6 MG, 3X/DAY (3 TABLETS AFTER EACH MEAL)
     Dates: start: 20240111
  4. TIZANIDINE [Concomitant]
     Active Substance: TIZANIDINE
     Dosage: 1 MG, 1X/DAY (1 TABLET AFTER DINNER)
     Dates: start: 20240111
  5. BENIDIPINE HYDROCHLORIDE [Concomitant]
     Active Substance: BENIDIPINE HYDROCHLORIDE
     Dosage: 4 MG, 1X/DAY (1 TABLET AFTER DINNER)
     Dates: start: 20240111

REACTIONS (6)
  - Cardiac failure [Unknown]
  - Gastroduodenal ulcer [Recovering/Resolving]
  - Haemoglobin decreased [Recovering/Resolving]
  - Blood iron decreased [Unknown]
  - Serum ferritin decreased [Unknown]
  - Hypophagia [Unknown]

NARRATIVE: CASE EVENT DATE: 20240304
